FAERS Safety Report 4313420-0 (Version None)
Quarter: 2004Q1

REPORT INFORMATION
  Report Type: 
  Country: None (occurrence: None)
  Receive Date: 20040305
  Receipt Date: 20040305
  Transmission Date: 20041129
  Serious: Yes (Hospitalization)
  Sender: FDA-Public Use
  Company Number: None

PATIENT
  Sex: Male
  Weight: 25.5 kg

DRUGS (2)
  1. VANCOMYCIN [Suspect]
     Indication: RENAL ABSCESS
     Dosage: 400MG/100ML Q8HOURS IV
     Route: 042
     Dates: start: 20040227
  2. ROCEPHIN [Suspect]
     Dosage: 1875 MG/50ML QD IV
     Route: 042
     Dates: start: 20040301

REACTIONS (1)
  - RED MAN SYNDROME [None]
